FAERS Safety Report 15671742 (Version 5)
Quarter: 2019Q2

REPORT INFORMATION
  Report Type: Spontaneous
  Country: NL (occurrence: NL)
  Receive Date: 20181129
  Receipt Date: 20190618
  Transmission Date: 20190711
  Serious: Yes (Other)
  Sender: FDA-Public Use
  Company Number: NL-SA-2018SA323584

PATIENT
  Age: 77 Year
  Sex: Male

DRUGS (79)
  1. METOPROLOL SALT NOT SPECIFIED [Suspect]
     Active Substance: METOPROLOL
     Dosage: 2 TABLETS IN THE MORNING AND 1 IN THE EVENING;TWICE DAILY
     Route: 065
  2. METOPROLOL SALT NOT SPECIFIED [Suspect]
     Active Substance: METOPROLOL
     Dosage: 50 MG, QD (50 MG 1 IN 1 D)
  3. METOPROLOL SALT NOT SPECIFIED [Suspect]
     Active Substance: METOPROLOL
     Dosage: 500 MG; 500 MG (2 DF IN MORNING, 1 DF IN THE EVENING)
  4. DIGOXIN. [Suspect]
     Active Substance: DIGOXIN
     Dosage: 0.13 MG QD
  5. DIGOXIN. [Suspect]
     Active Substance: DIGOXIN
     Dosage: 0.125 MG, QD (0.13 MG,1 IN 1 D)
  6. DIGOXIN. [Suspect]
     Active Substance: DIGOXIN
     Dosage: 0.125 MG, QD (0.13 MG,1 IN 1 D)
  7. DIGOXIN. [Suspect]
     Active Substance: DIGOXIN
     Dosage: 0.125 MG, QD (0.13 MG,1 IN 1 D)
  8. DIGOXIN. [Suspect]
     Active Substance: DIGOXIN
     Dosage: 0.13 MG QD
  9. DIGOXIN. [Suspect]
     Active Substance: DIGOXIN
     Dosage: 0.13 MG QD
  10. METOPROLOL SALT NOT SPECIFIED [Suspect]
     Active Substance: METOPROLOL
     Dosage: 50 MG, ONCE DAILY
  11. METOPROLOL SALT NOT SPECIFIED [Suspect]
     Active Substance: METOPROLOL
     Dosage: 500 MG, (2 DF IN THE MORNING, 1 DF IN THE EVENING)
  12. METOPROLOL SALT NOT SPECIFIED [Suspect]
     Active Substance: METOPROLOL
     Dosage: 500 MG BID; 500 MG (2 DF IN THE MORNING, 1 DF IN THE EVENING)
  13. DIGOXIN. [Suspect]
     Active Substance: DIGOXIN
     Dosage: 0.125 MG, QD (0.13 MG,1 IN 1 D)
  14. DIGOXIN. [Suspect]
     Active Substance: DIGOXIN
     Dosage: 0.062 MG QD
  15. DIGOXIN. [Suspect]
     Active Substance: DIGOXIN
     Dosage: 0.13 MG QD
  16. DIGOXIN. [Suspect]
     Active Substance: DIGOXIN
     Dosage: 0.125 MG QD
  17. DIGOXIN. [Suspect]
     Active Substance: DIGOXIN
     Dosage: 0.13 MG QD
  18. DIGOXIN. [Suspect]
     Active Substance: DIGOXIN
     Dosage: 0.13 MG QD
  19. DIGOXIN. [Suspect]
     Active Substance: DIGOXIN
     Dosage: 0.125 MG, QD (0.13 MG,1 IN 1 D)
  20. DIGOXIN. [Suspect]
     Active Substance: DIGOXIN
     Dosage: 0.062 MG QD
  21. DIGOXIN. [Suspect]
     Active Substance: DIGOXIN
     Dosage: 0.062 MG, QD (0.06 MG 1 IN 1D)
  22. METOPROLOL SALT NOT SPECIFIED [Suspect]
     Active Substance: METOPROLOL
     Dosage: 50 UNIT NOT PROVIDED, ONCE DAILY (50, 1 IN 1 D)
  23. METOPROLOL SALT NOT SPECIFIED [Suspect]
     Active Substance: METOPROLOL
     Dosage: 50 UNIT NOT PROVIDED, ONCE DAILY (50, 1 IN 1 D)
  24. METOPROLOL SALT NOT SPECIFIED [Suspect]
     Active Substance: METOPROLOL
     Dosage: 500 MG, Q12H; DF IN THE MORNING, 1 DF IN THE EVENING) (500 MG 1 IN 12 HR)
  25. DIGOXIN. [Suspect]
     Active Substance: DIGOXIN
     Dosage: 0.125 MG, QD
  26. DIGOXIN. [Suspect]
     Active Substance: DIGOXIN
     Dosage: 0.062 MG QD
  27. DIGOXIN. [Suspect]
     Active Substance: DIGOXIN
     Dosage: 0.062 MG QD
  28. DIGOXIN. [Suspect]
     Active Substance: DIGOXIN
     Dosage: 0.062 MG QD
  29. DIGOXIN. [Suspect]
     Active Substance: DIGOXIN
     Dosage: 0.13 MG QD
  30. DIGOXIN. [Suspect]
     Active Substance: DIGOXIN
     Dosage: 0.062 MG QD
  31. DIGOXIN. [Suspect]
     Active Substance: DIGOXIN
     Dosage: 0.062 MG QD
  32. DIGOXIN. [Suspect]
     Active Substance: DIGOXIN
     Dosage: 0.13 MG QD
  33. PANTOPRAZOLE [PANTOPRAZOLE SODIUM SESQUIHYDRATE] [Concomitant]
     Dosage: REDUCED
     Route: 065
  34. METOPROLOL SALT NOT SPECIFIED [Suspect]
     Active Substance: METOPROLOL
     Dosage: 500 MG, Q12H; (500 MG, QD (2 DF IN THE MORNING, 1 DF IN THE EVENING) (500 MG 1 IN 12 HR))
  35. DIGOXIN. [Suspect]
     Active Substance: DIGOXIN
     Dosage: 0.13 MG, QD
  36. DIGOXIN. [Suspect]
     Active Substance: DIGOXIN
     Dosage: 0.13 MG QD
  37. DIGOXIN. [Suspect]
     Active Substance: DIGOXIN
     Dosage: 0.125 MG, QD (0.13 MG,1 IN 1 D)
  38. DIGOXIN. [Suspect]
     Active Substance: DIGOXIN
     Dosage: 0.062 MG QD
  39. DIGOXIN. [Suspect]
     Active Substance: DIGOXIN
     Dosage: 0.062 MG QD
  40. DIGOXIN. [Suspect]
     Active Substance: DIGOXIN
     Dosage: 0.062 MG, QD (0.06 MG 1 IN 1 D)
  41. CALCIUM +D3 [Concomitant]
     Active Substance: CALCIUM\CHOLECALCIFEROL
     Dosage: CALCIUM/VITAMIN D3 500 MG/800 IE, QD
     Route: 065
  42. METOPROLOL SALT NOT SPECIFIED [Suspect]
     Active Substance: METOPROLOL
     Dosage: 50 MG, 2X/DAY(IN THE MORNING AND IN THE EVENING
     Route: 065
  43. METOPROLOL SALT NOT SPECIFIED [Suspect]
     Active Substance: METOPROLOL
     Dosage: 500 MG, Q12H (DF IN THE MORNING, 1 DF IN THE EVENING)
  44. METOPROLOL SALT NOT SPECIFIED [Suspect]
     Active Substance: METOPROLOL
     Dosage: 500 MG, (2 DF IN THE MORNING, 1 DF IN THE EVENING) 500 MG, 1 IN 12 HR)
  45. METOPROLOL SALT NOT SPECIFIED [Suspect]
     Active Substance: METOPROLOL
     Dosage: 50 MG, QD (50 MG,1 IN 1 D)
  46. DIGOXIN. [Suspect]
     Active Substance: DIGOXIN
     Dosage: 0.13 MG QD
  47. DIGOXIN. [Suspect]
     Active Substance: DIGOXIN
     Dosage: 0.125 MG, QD (0.13 MG,1 IN 1 D)
  48. ISOSORBIDE MONONITRATE. [Concomitant]
     Active Substance: ISOSORBIDE MONONITRATE
     Dosage: 25 MG, 1X/DAY
     Route: 065
  49. PANTOPRAZOLE [PANTOPRAZOLE SODIUM SESQUIHYDRATE] [Concomitant]
     Dosage: 40 MG, QD
     Route: 065
  50. PARACETAMOL [Concomitant]
     Active Substance: ACETAMINOPHEN
     Dosage: UNK
     Route: 065
  51. DIGOXIN. [Suspect]
     Active Substance: DIGOXIN
     Dosage: 0.062 MG QD
  52. DIGOXIN. [Suspect]
     Active Substance: DIGOXIN
     Dosage: 0.062 MG, QD
  53. DIGOXIN. [Suspect]
     Active Substance: DIGOXIN
     Dosage: 0.125 MG QD
  54. DIGOXIN. [Suspect]
     Active Substance: DIGOXIN
     Dosage: 0.125 MG, QD (0.13 MG,1 IN 1 D)
  55. DIPYRIDAMOLE. [Suspect]
     Active Substance: DIPYRIDAMOLE
     Dosage: 200 MG, 1X/DAY
     Route: 065
  56. TOLBUTAMIDE. [Concomitant]
     Active Substance: TOLBUTAMIDE
     Dosage: 500 MG, BID
     Route: 065
  57. METOPROLOL SALT NOT SPECIFIED [Suspect]
     Active Substance: METOPROLOL
     Dosage: 50 UNK, QD
  58. DIGOXIN. [Suspect]
     Active Substance: DIGOXIN
     Dosage: 0.125 MG, QD (0.13 MG,1 IN 1 D)
  59. DIGOXIN. [Suspect]
     Active Substance: DIGOXIN
     Dosage: 0.13 MG QD
  60. DIGOXIN. [Suspect]
     Active Substance: DIGOXIN
     Dosage: 0.13 MG QD
  61. DIGOXIN. [Suspect]
     Active Substance: DIGOXIN
     Dosage: 0.13 MG QD
  62. DIGOXIN. [Suspect]
     Active Substance: DIGOXIN
     Dosage: 0.125 MG QD
  63. DIGOXIN. [Suspect]
     Active Substance: DIGOXIN
     Dosage: 0.125 MG, QD ((0.13 MG,1 IN 1 D)
  64. DIGOXIN. [Suspect]
     Active Substance: DIGOXIN
     Dosage: 0.125 MG, QD (0.13 MG,1 IN 1 D)
  65. METFORMIN HCL [Concomitant]
     Active Substance: METFORMIN HYDROCHLORIDE
     Dosage: 500 MG, TID
     Route: 065
  66. PANTOPRAZOLE [PANTOPRAZOLE SODIUM SESQUIHYDRATE] [Concomitant]
     Dosage: 80 MG, QD TEMPORARILY DOUBLE THE DOSE OF PANTOPRAZOLE
     Route: 065
  67. DABIGATRAN [Concomitant]
     Active Substance: DABIGATRAN
     Dosage: 150 MG, BID
     Route: 065
     Dates: start: 2014
  68. METOPROLOL SALT NOT SPECIFIED [Suspect]
     Active Substance: METOPROLOL
     Dosage: 50 MG QD; (50 MG, 1 IN 1 D)
  69. METOPROLOL SALT NOT SPECIFIED [Suspect]
     Active Substance: METOPROLOL
     Dosage: 50 MG, QD
  70. DIGOXIN. [Suspect]
     Active Substance: DIGOXIN
     Dosage: 0.062 MG, QD
     Route: 065
  71. DIGOXIN. [Suspect]
     Active Substance: DIGOXIN
     Dosage: 0.062 MG QD
  72. DIGOXIN. [Suspect]
     Active Substance: DIGOXIN
     Dosage: 0.13 MG QD
  73. DIGOXIN. [Suspect]
     Active Substance: DIGOXIN
     Dosage: 0.13 MG QD
  74. DIGOXIN. [Suspect]
     Active Substance: DIGOXIN
     Dosage: 0.062 MG QD
  75. DIGOXIN. [Suspect]
     Active Substance: DIGOXIN
     Dosage: 0.062 MG QD
  76. DIGOXIN. [Suspect]
     Active Substance: DIGOXIN
     Dosage: 0.125 MG, QD (0.13 MG, 1 IN 1D)
  77. DIGOXIN. [Suspect]
     Active Substance: DIGOXIN
     Dosage: 0.062 MG, QD (0.06 MG 1 IN 1D)
  78. TAMSULOSIN HYDROCHLORIDE. [Suspect]
     Active Substance: TAMSULOSIN HYDROCHLORIDE
     Dosage: 0.4 MG, 1X/DAY (1 UNIT)
     Route: 065
  79. ATORVASTATIN CALCIUM. [Concomitant]
     Active Substance: ATORVASTATIN CALCIUM
     Dosage: 40 MG, 1X/DAY
     Route: 065

REACTIONS (4)
  - Dizziness [Recovering/Resolving]
  - Drug ineffective [Unknown]
  - Cognitive disorder [Not Recovered/Not Resolved]
  - Gastric disorder [Recovered/Resolved]
